FAERS Safety Report 10598813 (Version 5)
Quarter: 2015Q1

REPORT INFORMATION
  Report Type: Spontaneous
  Country: JP (occurrence: JP)
  Receive Date: 20141121
  Receipt Date: 20150120
  Transmission Date: 20150720
  Serious: Yes (Death, Other)
  Sender: FDA-Public Use
  Company Number: JP-BRISTOL-MYERS SQUIBB COMPANY-21443999

PATIENT
  Age: 88 Year
  Sex: Male
  Weight: 51 kg

DRUGS (10)
  1. DEPAS [Concomitant]
     Active Substance: ETIZOLAM
     Indication: PSYCHOSOMATIC DISEASE
  2. DECADRON (DEXAMETHASONE SODIUM PHOSPHATE) [Concomitant]
     Active Substance: DEXAMETHASONE SODIUM PHOSPHATE
  3. CAMOSTAT [Concomitant]
     Active Substance: CAMOSTAT
     Indication: GASTROOESOPHAGEAL REFLUX DISEASE
  4. PERSANTIN [Concomitant]
     Active Substance: DIPYRIDAMOLE
     Indication: ANGINA PECTORIS
  5. PURSENNID                          /00142207/ [Concomitant]
     Active Substance: SENNOSIDES A AND B
     Indication: CONSTIPATION
  6. TALION                             /01587402/ [Concomitant]
     Active Substance: BEPOTASTINE
     Indication: ERYTHEMA MULTIFORME
  7. PARIET [Concomitant]
     Active Substance: RABEPRAZOLE SODIUM
     Indication: GASTROOESOPHAGEAL REFLUX DISEASE
  8. ARRESTEN [Concomitant]
     Indication: HYPERTENSION
  9. URSO [Concomitant]
     Active Substance: URSODIOL
     Indication: LIVER DISORDER
  10. ERBITUX [Suspect]
     Active Substance: CETUXIMAB
     Indication: OROPHARYNGEAL CANCER
     Dosage: 400 MG/M2, UNK
     Route: 041
     Dates: start: 20140925, end: 20140925

REACTIONS (3)
  - Pneumonia aspiration [Unknown]
  - Sepsis [Fatal]
  - Infusion related reaction [Recovered/Resolved]

NARRATIVE: CASE EVENT DATE: 20140925
